FAERS Safety Report 12890762 (Version 2)
Quarter: 2017Q1

REPORT INFORMATION
  Report Type: Spontaneous
  Country: US (occurrence: US)
  Receive Date: 20161027
  Receipt Date: 20170323
  Transmission Date: 20170428
  Serious: Yes (Hospitalization, Disabling, Other)
  Sender: FDA-Public Use
  Company Number: US-SAOL THERAPEUTICS-2016SAO00798

PATIENT
  Age: 48 Year
  Sex: Female
  Weight: 71.66 kg

DRUGS (40)
  1. MAG-OX [Concomitant]
     Active Substance: MAGNESIUM OXIDE
     Dosage: 400 MG, 1X/DAY
     Route: 048
  2. KLONOPIN [Concomitant]
     Active Substance: CLONAZEPAM
     Dosage: 0.5 MG, 2X/DAY
     Route: 048
  3. COLACE [Concomitant]
     Active Substance: DOCUSATE SODIUM
     Dosage: 100 MG, 2X/DAY
     Route: 048
  4. PERCOCOET [Concomitant]
     Dosage: 1 TABLETS, UP TO 4X/DAY
     Route: 048
  5. MORPHINE [Suspect]
     Active Substance: MORPHINE
     Dosage: 3.305 MG, \DAY
     Route: 037
  6. MORPHINE [Suspect]
     Active Substance: MORPHINE
     Dosage: 2.548 MG, \DAY
     Route: 037
     Dates: start: 20160928
  7. VENTOLIN HFA [Concomitant]
     Active Substance: ALBUTEROL SULFATE
  8. COLACE [Concomitant]
     Active Substance: DOCUSATE SODIUM
     Dosage: 100 MG, 1X/DAY
     Route: 048
  9. COUMADIN [Concomitant]
     Active Substance: WARFARIN SODIUM
     Dosage: 5 MG, EVERY 48 HOURS
     Route: 048
  10. ACETOMINOPHEN [Concomitant]
     Dosage: 1000 MG, 4X/DAY
     Route: 048
  11. CARAFATE [Concomitant]
     Active Substance: SUCRALFATE
     Dosage: 1 G, 2X/DAY
     Route: 048
  12. NEURONTIN [Concomitant]
     Active Substance: GABAPENTIN
     Dosage: 400 MG, 2X/DAY
     Route: 048
  13. AMITIZA [Concomitant]
     Active Substance: LUBIPROSTONE
     Dosage: UNK
  14. COMPOUNDED BACLOFEN [Suspect]
     Active Substance: BACLOFEN
     Dosage: 636.9 ?G, \DAY
     Dates: start: 20160928
  15. BACLOFEN. [Suspect]
     Active Substance: BACLOFEN
     Dosage: 636.5 ?G, \DAY
     Route: 037
     Dates: start: 20161007
  16. MORPHINE [Suspect]
     Active Substance: MORPHINE
     Dosage: 2.972 MG, \DAY
     Route: 037
     Dates: start: 20160926
  17. VITAMIN C [Concomitant]
     Active Substance: ASCORBIC ACID
     Dosage: 500 MG, 1X/DAY
     Route: 048
  18. NEXIUM [Concomitant]
     Active Substance: ESOMEPRAZOLE MAGNESIUM
     Dosage: 40 MG, 1X/DAY
     Route: 048
  19. COMPOUNDED BACLOFEN [Suspect]
     Active Substance: BACLOFEN
     Indication: SPINAL CORD INJURY
     Dosage: 1000 ?G, \DAY
     Route: 037
     Dates: end: 20160924
  20. LASIX [Concomitant]
     Active Substance: FUROSEMIDE
     Dosage: 20 MG, 2X/DAY
     Route: 048
  21. PERCOCET [Concomitant]
     Active Substance: ACETAMINOPHEN\OXYCODONE HYDROCHLORIDE
     Dosage: 1 TABLETS, UP TO 4X/DAY
     Route: 048
     Dates: start: 20160602, end: 20160702
  22. COUMADIN [Concomitant]
     Active Substance: WARFARIN SODIUM
     Dosage: 2.5 MG, EVERY 48 HOURS
     Route: 048
  23. NORCO [Concomitant]
     Active Substance: ACETAMINOPHEN\HYDROCODONE BITARTRATE
     Dosage: 1 TABLETS, UP TO 4X/DAY
     Route: 048
  24. NEURONTIN [Concomitant]
     Active Substance: GABAPENTIN
     Dosage: 800 MG, 2X/DAY
     Route: 048
  25. PERCOCET [Concomitant]
     Active Substance: ACETAMINOPHEN\OXYCODONE HYDROCHLORIDE
     Dosage: 1 TABLETS, UP TO 3X/DAY
     Route: 048
  26. PERCOCET [Concomitant]
     Active Substance: ACETAMINOPHEN\OXYCODONE HYDROCHLORIDE
     Dosage: 1 TABLETS, UP TO 3X/DAY
     Route: 048
     Dates: start: 20160702, end: 20160802
  27. POTASSIUM CHLORIDE. [Concomitant]
     Active Substance: POTASSIUM CHLORIDE
     Dosage: 20 MEQ, 2X/DAY
     Route: 048
  28. SPIRIVA WITH HANDIHALER [Concomitant]
     Dosage: 18 ?G, 1X/DAY
  29. COUMADIN [Concomitant]
     Active Substance: WARFARIN SODIUM
     Dosage: 5 MG, 1X/DAY
  30. MULTIVITAMIN [Concomitant]
     Active Substance: VITAMINS
     Dosage: 1 TABLETS, 1X/DAY
     Route: 048
  31. NEURONTIN [Concomitant]
     Active Substance: GABAPENTIN
     Dosage: 400 MG, 1X/DAY
     Route: 048
     Dates: start: 20160926
  32. PANTOPRAZOLE EC [Concomitant]
     Dosage: 40 MG, 2X/DAY
     Route: 048
  33. LIDODERM [Concomitant]
     Active Substance: LIDOCAINE
     Dosage: 1 DOSAGE UNITS, \DAY
     Dates: start: 20160516, end: 20160824
  34. COMPOUNDED BACLOFEN [Suspect]
     Active Substance: BACLOFEN
     Indication: PARAPARESIS
     Dosage: 826.3 ?G, \DAY
     Route: 037
     Dates: start: 20160926
  35. COMPOUNDED BACLOFEN [Suspect]
     Active Substance: BACLOFEN
     Indication: POST LAMINECTOMY SYNDROME
     Dosage: 1085 ?G, \DAY
     Route: 037
     Dates: start: 20160721
  36. COMPOUNDED BACLOFEN [Suspect]
     Active Substance: BACLOFEN
     Dosage: 743.1 ?G, \DAY
     Route: 037
     Dates: start: 20160926
  37. MORPHINE [Suspect]
     Active Substance: MORPHINE
     Dosage: 4.1 MG, \DAY
     Route: 037
     Dates: start: 20160721
  38. MORPHINE [Suspect]
     Active Substance: MORPHINE
     Dosage: 2.546 MG, \DAY
     Route: 037
     Dates: start: 20161007
  39. SENOKOT [Concomitant]
     Active Substance: SENNOSIDES
     Dosage: 1 DOSAGE UNITS, UP TO 1X/DAY
     Route: 048
  40. VITAMIN C [Concomitant]
     Active Substance: ASCORBIC ACID
     Dosage: 400 MG, 1X/DAY
     Route: 048

REACTIONS (17)
  - Nausea [Recovered/Resolved]
  - Abdominal distension [Recovered/Resolved]
  - Gait disturbance [Unknown]
  - Infection [Unknown]
  - Malaise [Recovered/Resolved]
  - Overdose [Recovered/Resolved]
  - Incorrect route of drug administration [Recovered/Resolved]
  - Hypotonia [Recovered/Resolved]
  - Hypotension [Recovered/Resolved]
  - Speech disorder [Recovered/Resolved]
  - Muscle spasticity [Unknown]
  - Pneumonia [Recovering/Resolving]
  - Abdominal pain [Recovered/Resolved]
  - Musculoskeletal pain [Recovered/Resolved]
  - Bradycardia [Recovered/Resolved]
  - Dyspnoea [Recovered/Resolved]
  - Depressed level of consciousness [Recovered/Resolved]

NARRATIVE: CASE EVENT DATE: 20160923
